FAERS Safety Report 7700312-X (Version None)
Quarter: 2011Q3

REPORT INFORMATION
  Report Type: 
  Country: None (occurrence: None)
  Receive Date: 20110816
  Receipt Date: 20110803
  Transmission Date: 20111222
  Serious: Yes (Other)
  Sender: FDA-Public Use
  Company Number: TPA2011A04602

PATIENT
  Age: 71 Year
  Sex: Male

DRUGS (6)
  1. LISINOPRIL HCTZ (HYDROCHLOROTHIAZIDE, LISINOPRIL) [Concomitant]
  2. ACTOS [Suspect]
     Indication: TYPE 2 DIABETES MELLITUS
     Dosage: 1 IN 1 D, PER ORAL
     Route: 048
     Dates: start: 20090301, end: 20110630
  3. GLUCOTROL [Concomitant]
  4. FLOMAX [Concomitant]
  5. TRADJENTA (LINAGLIPTIN) (ORAL ANTIDIABETICS) [Concomitant]
  6. SIMVASTATIN [Concomitant]

REACTIONS (1)
  - BLADDER CANCER [None]
